FAERS Safety Report 5096978-6 (Version None)
Quarter: 2006Q3

REPORT INFORMATION
  Report Type: 
  Country: None (occurrence: None)
  Receive Date: 20060831
  Receipt Date: 20060831
  Transmission Date: 20061208
  Serious: Yes (Other)
  Sender: FDA-Public Use
  Company Number: None

PATIENT
  Age: 38 Year
  Sex: Female
  Weight: 92.0802 kg

DRUGS (1)
  1. LYRICA [Suspect]
     Dosage: 75     BID   PO
     Route: 048

REACTIONS (5)
  - DYSPNOEA [None]
  - OEDEMA PERIPHERAL [None]
  - PANIC REACTION [None]
  - PRURITUS [None]
  - RASH [None]
